FAERS Safety Report 15601103 (Version 1)
Quarter: 2018Q4

REPORT INFORMATION
  Report Type: Spontaneous
  Country: GB (occurrence: GB)
  Receive Date: 20181109
  Receipt Date: 20181109
  Transmission Date: 20190205
  Serious: Yes (Disabling, Other)
  Sender: FDA-Public Use
  Company Number: GB-BRISTOL-MYERS SQUIBB COMPANY-BMS-2018-102858

PATIENT
  Age: 59 Year
  Sex: Male
  Weight: 56 kg

DRUGS (1)
  1. OPDIVO [Suspect]
     Active Substance: NIVOLUMAB
     Indication: TONSIL CANCER
     Dosage: 160 MG, UNK
     Route: 042
     Dates: start: 20180313, end: 20180410

REACTIONS (1)
  - Enterocolitis [Recovering/Resolving]

NARRATIVE: CASE EVENT DATE: 20180601
